FAERS Safety Report 14348885 (Version 1)
Quarter: 2018Q1

REPORT INFORMATION
  Report Type: Report from Study
  Country: None (occurrence: US)
  Receive Date: 20180104
  Receipt Date: 20180104
  Transmission Date: 20180509
  Serious: Yes (Hospitalization)
  Sender: FDA-Public Use
  Company Number: US-ABBVIE-18K-163-2209811-00

PATIENT
  Age: 40 Year
  Sex: Female

DRUGS (1)
  1. HUMIRA [Suspect]
     Active Substance: ADALIMUMAB
     Indication: PRODUCT USED FOR UNKNOWN INDICATION
     Route: 058
     Dates: start: 201707, end: 2017

REACTIONS (6)
  - Nasal discharge discolouration [Unknown]
  - Nasopharyngitis [Unknown]
  - Respiratory tract infection [Not Recovered/Not Resolved]
  - Cough [Unknown]
  - Intestinal obstruction [Recovering/Resolving]
  - Respiratory tract congestion [Unknown]

NARRATIVE: CASE EVENT DATE: 2017
